FAERS Safety Report 9025938 (Version 1)
Quarter: 2013Q1

REPORT INFORMATION
  Report Type: Spontaneous
  Country: JP (occurrence: JP)
  Receive Date: 20130122
  Receipt Date: 20130122
  Transmission Date: 20140127
  Serious: Yes (Hospitalization)
  Sender: FDA-Public Use
  Company Number: JP-ASTRAZENECA-2013SE02918

PATIENT
  Age: 70 Year
  Sex: Male

DRUGS (2)
  1. NEXIUM [Suspect]
     Indication: GASTROOESOPHAGEAL REFLUX DISEASE
     Route: 048
     Dates: start: 201212, end: 201301
  2. LOXONIN [Suspect]
     Route: 048
     Dates: start: 201212, end: 201301

REACTIONS (2)
  - Liver function test abnormal [Recovering/Resolving]
  - Malaise [Unknown]
